FAERS Safety Report 6343401-7 (Version None)
Quarter: 2009Q3

REPORT INFORMATION
  Report Type: 
  Country: None (occurrence: None)
  Receive Date: 20090908
  Receipt Date: 20090901
  Transmission Date: 20100115
  Serious: Yes (Hospitalization, Other)
  Sender: FDA-Public Use
  Company Number: PHHY2009JP16135

PATIENT
  Sex: Female

DRUGS (7)
  1. VOLTAREN [Suspect]
     Indication: LUMBAR SPINAL STENOSIS
     Dosage: 50 MG/DAY
     Route: 054
     Dates: start: 20090425, end: 20090425
  2. VOLTAREN [Suspect]
     Indication: BACK PAIN
  3. VOLTAREN [Suspect]
  4. OLMETEC [Concomitant]
     Dosage: UNK
     Dates: start: 20090425
  5. CINALONG [Concomitant]
     Dosage: UNK
     Dates: start: 20090425
  6. ALOSENN [Concomitant]
     Dosage: UNK
     Dates: start: 20090425
  7. ALLELOCK [Concomitant]
     Dosage: UNK
     Dates: start: 20090425

REACTIONS (10)
  - BLOOD PRESSURE DECREASED [None]
  - BODY TEMPERATURE INCREASED [None]
  - DEPRESSED LEVEL OF CONSCIOUSNESS [None]
  - DIZZINESS [None]
  - FEELING HOT [None]
  - GENERALISED ERYTHEMA [None]
  - LYMPHOCYTE STIMULATION TEST POSITIVE [None]
  - MALAISE [None]
  - SHOCK [None]
  - WHITE BLOOD CELL COUNT INCREASED [None]
